FAERS Safety Report 12007042 (Version 1)
Quarter: 2016Q1

REPORT INFORMATION
  Report Type: Report from Study
  Country: US (occurrence: US)
  Receive Date: 20160205
  Receipt Date: 20160205
  Transmission Date: 20160526
  Serious: No
  Sender: FDA-Public Use
  Company Number: US-ABBVIE-15K-163-1439881-00

PATIENT
  Age: 35 Year
  Sex: Male
  Weight: 85.35 kg

DRUGS (6)
  1. PREDNISONE. [Concomitant]
     Active Substance: PREDNISONE
     Indication: CROHN^S DISEASE
     Dates: start: 201508, end: 201508
  2. HUMIRA [Suspect]
     Active Substance: ADALIMUMAB
     Route: 058
     Dates: start: 201508, end: 201508
  3. HUMIRA [Suspect]
     Active Substance: ADALIMUMAB
     Dosage: TWO WEEKS AFTER 80MG DOSE
     Route: 058
     Dates: start: 201407, end: 201508
  4. HUMIRA [Suspect]
     Active Substance: ADALIMUMAB
     Indication: CROHN^S DISEASE
     Dosage: LOADING DOSE
     Route: 058
     Dates: start: 20140609, end: 20140609
  5. HUMIRA [Suspect]
     Active Substance: ADALIMUMAB
     Dosage: TWO WEEKS AFTER 160MG DOSE, LOADING DOSE
     Route: 058
     Dates: start: 201406, end: 201406
  6. HUMIRA [Suspect]
     Active Substance: ADALIMUMAB
     Route: 058
     Dates: start: 201509

REACTIONS (13)
  - Drug ineffective [Not Recovered/Not Resolved]
  - Hyperhidrosis [Not Recovered/Not Resolved]
  - Cough [Not Recovered/Not Resolved]
  - Abdominal distension [Not Recovered/Not Resolved]
  - Flatulence [Not Recovered/Not Resolved]
  - Back pain [Not Recovered/Not Resolved]
  - Arthralgia [Not Recovered/Not Resolved]
  - Arthralgia [Not Recovered/Not Resolved]
  - Pain in extremity [Not Recovered/Not Resolved]
  - Arthralgia [Not Recovered/Not Resolved]
  - Inappropriate schedule of drug administration [Recovered/Resolved]
  - Neck pain [Not Recovered/Not Resolved]
  - Dry throat [Not Recovered/Not Resolved]

NARRATIVE: CASE EVENT DATE: 20140608
